FAERS Safety Report 5270130-3 (Version None)
Quarter: 2007Q1

REPORT INFORMATION
  Report Type: 
  Country: None (occurrence: None)
  Receive Date: 20070320
  Receipt Date: 20070315
  Transmission Date: 20070707
  Serious: Yes (Life-Threatening)
  Sender: FDA-Public Use
  Company Number: IT-JNJFOC-20070303677

PATIENT
  Age: 85 Year
  Sex: Female

DRUGS (10)
  1. TAVANIC [Suspect]
     Indication: VIRAL INFECTION
     Route: 042
  2. TAVANIC [Concomitant]
     Route: 048
  3. FRAXIPARINE [Concomitant]
     Route: 058
  4. TORVAST [Concomitant]
     Route: 048
  5. SOTALOL HCL [Concomitant]
     Route: 048
  6. DIURESIX [Concomitant]
     Route: 048
  7. MONOCINQUE [Concomitant]
     Route: 048
  8. LUVION [Concomitant]
     Route: 048
  9. PARIET [Concomitant]
     Route: 048
  10. LEVOPRAID [Concomitant]
     Route: 030

REACTIONS (2)
  - CHOKING SENSATION [None]
  - INJECTION SITE REACTION [None]
